FAERS Safety Report 21016847 (Version 2)
Quarter: 2022Q3

REPORT INFORMATION
  Report Type: Spontaneous
  Country: BR (occurrence: BR)
  Receive Date: 20220628
  Receipt Date: 20220715
  Transmission Date: 20221027
  Serious: Yes (Hospitalization, Other)
  Sender: FDA-Public Use
  Company Number: BR-BAYER-2022A086012

PATIENT
  Age: 42 Year
  Sex: Female

DRUGS (2)
  1. NEXAVAR [Suspect]
     Active Substance: SORAFENIB
     Dosage: 200 MG, QD
     Dates: start: 20201112, end: 20211204
  2. TERIFLUNOMIDE [Concomitant]
     Active Substance: TERIFLUNOMIDE
     Indication: Multiple sclerosis

REACTIONS (4)
  - Post procedural fistula [Not Recovered/Not Resolved]
  - Infected fistula [None]
  - Off label use [None]
  - Skin exfoliation [None]

NARRATIVE: CASE EVENT DATE: 20201112
